FAERS Safety Report 13715678 (Version 1)
Quarter: 2017Q3

REPORT INFORMATION
  Report Type: Report from Study
  Country: ES (occurrence: ES)
  Receive Date: 20170705
  Receipt Date: 20170705
  Transmission Date: 20171127
  Serious: Yes (Other)
  Sender: FDA-Public Use
  Company Number: ES-ROCHE-1955406

PATIENT
  Sex: Female

DRUGS (6)
  1. PERTUZUMAB. [Suspect]
     Active Substance: PERTUZUMAB
     Indication: HER-2 POSITIVE BREAST CANCER
     Route: 065
  2. TRASTUZUMAB. [Suspect]
     Active Substance: TRASTUZUMAB
     Route: 042
  3. PACLITAXEL. [Suspect]
     Active Substance: PACLITAXEL
     Indication: HER-2 POSITIVE BREAST CANCER
     Route: 065
  4. PERTUZUMAB. [Suspect]
     Active Substance: PERTUZUMAB
     Route: 065
  5. DOCETAXEL. [Suspect]
     Active Substance: DOCETAXEL
     Indication: HER-2 POSITIVE BREAST CANCER
     Dosage: CYCLE 1 TO 6
     Route: 065
  6. TRASTUZUMAB. [Suspect]
     Active Substance: TRASTUZUMAB
     Indication: HER-2 POSITIVE BREAST CANCER
     Dosage: CYCLE 1
     Route: 042

REACTIONS (18)
  - Anaemia [Unknown]
  - Vomiting [Unknown]
  - Mucosal inflammation [Unknown]
  - Rhinorrhoea [Unknown]
  - Lacrimation increased [Unknown]
  - Neurotoxicity [Unknown]
  - Nausea [Unknown]
  - Skin toxicity [Unknown]
  - Febrile neutropenia [Unknown]
  - Alopecia [Unknown]
  - Dysgeusia [Unknown]
  - Decreased appetite [Unknown]
  - Constipation [Unknown]
  - Asthenia [Unknown]
  - Musculoskeletal pain [Unknown]
  - Onycholysis [Unknown]
  - Diarrhoea [Unknown]
  - Pyrexia [Unknown]
